FAERS Safety Report 6683969-4 (Version None)
Quarter: 2010Q2

REPORT INFORMATION
  Report Type: 
  Country: None (occurrence: None)
  Receive Date: 20100416
  Receipt Date: 20100402
  Transmission Date: 20101027
  Serious: Yes (Other)
  Sender: FDA-Public Use
  Company Number: US-ELI_LILLY_AND_COMPANY-US201002005782

PATIENT
  Age: 75 Year
  Sex: Male
  Weight: 93.878 kg

DRUGS (3)
  1. EFFIENT [Suspect]
     Indication: PERCUTANEOUS CORONARY INTERVENTION
     Dosage: 60 MG, UNK
     Dates: start: 20100201, end: 20100201
  2. EFFIENT [Suspect]
     Dosage: UNK, UNK
     Dates: start: 20100201
  3. ANGIOMAX [Concomitant]
     Route: 042

REACTIONS (2)
  - EPISTAXIS [None]
  - THROMBOSIS IN DEVICE [None]
